FAERS Safety Report 14344254 (Version 1)
Quarter: 2018Q1

REPORT INFORMATION
  Report Type: Spontaneous
  Country: US (occurrence: US)
  Receive Date: 20180102
  Receipt Date: 20180102
  Transmission Date: 20180509
  Serious: Yes (Death, Other)
  Sender: FDA-Public Use
  Company Number: US-009507513-1712USA014628

PATIENT
  Age: 49 Year
  Sex: Female

DRUGS (4)
  1. COZAAR [Suspect]
     Active Substance: LOSARTAN POTASSIUM
     Dosage: UNK
     Route: 048
  2. DILTIAZEM. [Suspect]
     Active Substance: DILTIAZEM
  3. ACETAMINOPHEN. [Suspect]
     Active Substance: ACETAMINOPHEN
  4. ETHYL SALICYLATE. [Suspect]
     Active Substance: ETHYL SALICYLATE

REACTIONS (1)
  - Death [Fatal]
